FAERS Safety Report 21817458 (Version 1)
Quarter: 2023Q1

REPORT INFORMATION
  Report Type: Report from Study
  Country: US (occurrence: US)
  Receive Date: 20230104
  Receipt Date: 20230104
  Transmission Date: 20230417
  Serious: No
  Sender: FDA-Public Use
  Company Number: US-ABBVIE-4220005

PATIENT
  Sex: Male

DRUGS (4)
  1. RINVOQ [Suspect]
     Active Substance: UPADACITINIB
     Indication: Dermatitis atopic
     Dosage: RINVOQ START DATE: AUG 2022; FORM STRENGTH: 15 MG
     Route: 048
  2. AIRBORNE 250-12.5MG TAB CHEW [Concomitant]
     Indication: Product used for unknown indication
     Dosage: AIRBORNE 250-12.5MG TAB CHEW
     Route: 048
  3. ADVAIR EASKUS [Concomitant]
     Indication: Product used for unknown indication
     Dosage: ADVAIR EASKUS 100-50 MCG BLST W/DEV
  4. ALBUTEROL SULFATE [Concomitant]
     Active Substance: ALBUTEROL SULFATE
     Indication: Product used for unknown indication

REACTIONS (2)
  - Therapeutic product effect incomplete [Not Recovered/Not Resolved]
  - Dermatitis atopic [Not Recovered/Not Resolved]

NARRATIVE: CASE EVENT DATE: 20220101
